FAERS Safety Report 5272851-5 (Version None)
Quarter: 2007Q1

REPORT INFORMATION
  Report Type: 
  Country: None (occurrence: None)
  Receive Date: 20070322
  Receipt Date: 20070313
  Transmission Date: 20070707
  Serious: Yes (Other)
  Sender: FDA-Public Use
  Company Number: DE-GILEAD-2006-0010872

PATIENT
  Sex: Female
  Weight: 75 kg

DRUGS (6)
  1. VIREAD [Suspect]
     Indication: HIV INFECTION
     Route: 048
     Dates: start: 20021201, end: 20060503
  2. EPIVIR [Concomitant]
     Indication: HIV INFECTION
     Route: 048
     Dates: start: 20021201
  3. REYATAZ [Concomitant]
     Indication: HIV INFECTION
     Route: 048
     Dates: start: 20040601
  4. GABAPENTIN [Concomitant]
     Indication: POLYNEUROPATHY
     Route: 048
     Dates: start: 20040601
  5. CALCIUM [Concomitant]
     Indication: OSTEOPOROSIS
     Route: 048
     Dates: start: 20050601
  6. VITAMIN D3 [Concomitant]
     Indication: OSTEOPOROSIS
     Route: 048
     Dates: start: 20050601

REACTIONS (2)
  - BLOOD CREATININE INCREASED [None]
  - OSTEOPOROSIS [None]
